FAERS Safety Report 6795462-9 (Version None)
Quarter: 2010Q2

REPORT INFORMATION
  Report Type: 
  Country: None (occurrence: None)
  Receive Date: 20100625
  Receipt Date: 20100616
  Transmission Date: 20101027
  Serious: Yes (Other)
  Sender: FDA-Public Use
  Company Number: US-JNJCH-2010014721

PATIENT
  Age: 60 Year
  Sex: Male

DRUGS (1)
  1. BENADRYL [Suspect]
     Indication: POSTNASAL DRIP
     Dosage: TEXT:4 TABLETS EACH NIGHT 1X
     Route: 048
     Dates: start: 20000101, end: 20100616

REACTIONS (4)
  - HAEMORRHAGE [None]
  - INCORRECT DOSE ADMINISTERED [None]
  - OFF LABEL USE [None]
  - PRODUCT QUALITY ISSUE [None]
